FAERS Safety Report 15829330 (Version 1)
Quarter: 2019Q1

REPORT INFORMATION
  Report Type: Spontaneous
  Country: US (occurrence: US)
  Receive Date: 20190115
  Receipt Date: 20190115
  Transmission Date: 20190417
  Serious: No
  Sender: FDA-Public Use
  Company Number: US-ALLERGAN-1857002US

PATIENT
  Age: 89 Year
  Sex: Male

DRUGS (2)
  1. RESTASIS [Suspect]
     Active Substance: CYCLOSPORINE
     Indication: PRODUCT USED FOR UNKNOWN INDICATION
     Dosage: 1 GTT, Q12H
     Route: 047
     Dates: end: 20181210
  2. EYE MEDICATION/SERUM [Concomitant]
     Dosage: UNK (FOUR TO FIVE TIMES A DAY WHEN AWAKE)

REACTIONS (3)
  - Accidental exposure to product [Unknown]
  - Eye irritation [Recovered/Resolved]
  - Incorrect dose administered [Unknown]
